FAERS Safety Report 5080544-2 (Version None)
Quarter: 2006Q3

REPORT INFORMATION
  Report Type: 
  Country: None (occurrence: None)
  Receive Date: 20060815
  Receipt Date: 20060301
  Transmission Date: 20061208
  Serious: Yes (Hospitalization)
  Sender: FDA-Public Use
  Company Number: US-AMGEN-US170753

PATIENT
  Sex: Female
  Weight: 66.3 kg

DRUGS (12)
  1. DARBEPOETIN ALFA [Suspect]
     Indication: ANAEMIA OF MALIGNANT DISEASE
     Route: 058
     Dates: start: 20060217
  2. NEULASTA [Concomitant]
     Indication: CHEMOTHERAPY
     Dates: start: 20060220
  3. RITUXAN [Concomitant]
  4. PREDNISONE [Concomitant]
  5. CYCLOPHOSPHAMIDE [Concomitant]
  6. DOXORUBICIN HYDROCHLORIDE [Concomitant]
  7. VINCRISTINE [Concomitant]
  8. DARVOCET [Concomitant]
  9. ATIVAN [Concomitant]
  10. LUNESTA [Concomitant]
  11. PROTONIX [Concomitant]
  12. COMPAZINE [Concomitant]

REACTIONS (4)
  - ARTHRALGIA [None]
  - BODY TEMPERATURE INCREASED [None]
  - POLLAKIURIA [None]
  - UPPER RESPIRATORY TRACT INFECTION [None]
